FAERS Safety Report 18626340 (Version 3)
Quarter: 2021Q1

REPORT INFORMATION
  Report Type: Report from Study
  Country: None (occurrence: US)
  Receive Date: 20201216
  Receipt Date: 20210215
  Transmission Date: 20210419
  Serious: Yes (Other)
  Sender: FDA-Public Use
  Company Number: US-ABBVIE-20K-163-3685288-00

PATIENT
  Age: 68 Year
  Sex: Female

DRUGS (9)
  1. ATENOLOL. [Concomitant]
     Active Substance: ATENOLOL
     Indication: HYPERTENSION
  2. KETOROLAC [Concomitant]
     Active Substance: KETOROLAC TROMETHAMINE
     Indication: POSTOPERATIVE CARE
  3. KETOROLAC [Concomitant]
     Active Substance: KETOROLAC TROMETHAMINE
     Indication: ANTIINFLAMMATORY THERAPY
     Dosage: EYE DROP
  4. PRED FORTE [Concomitant]
     Active Substance: PREDNISOLONE ACETATE
     Indication: ANTIINFLAMMATORY THERAPY
  5. ATORVASTATIN [Concomitant]
     Active Substance: ATORVASTATIN
     Indication: BLOOD CHOLESTEROL INCREASED
  6. RINVOQ [Suspect]
     Active Substance: UPADACITINIB
     Indication: RHEUMATOID ARTHRITIS
     Route: 048
     Dates: start: 201909
  7. PRED FORTE [Concomitant]
     Active Substance: PREDNISOLONE ACETATE
     Indication: POSTOPERATIVE CARE
  8. RINVOQ [Suspect]
     Active Substance: UPADACITINIB
     Indication: PSORIATIC ARTHROPATHY
  9. PROLIA [Concomitant]
     Active Substance: DENOSUMAB
     Indication: PRODUCT USED FOR UNKNOWN INDICATION
     Route: 050

REACTIONS (5)
  - Cataract [Unknown]
  - Muscular weakness [Unknown]
  - Pain [Recovered/Resolved]
  - Limb discomfort [Unknown]
  - Pain in extremity [Unknown]

NARRATIVE: CASE EVENT DATE: 202006
